FAERS Safety Report 20177955 (Version 1)
Quarter: 2021Q4

REPORT INFORMATION
  Report Type: Spontaneous
  Country: US (occurrence: US)
  Receive Date: 20211213
  Receipt Date: 20211213
  Transmission Date: 20220303
  Serious: No
  Sender: FDA-Public Use
  Company Number: US-SA-SAC20211206000246

PATIENT
  Sex: Female

DRUGS (6)
  1. DUPIXENT [Suspect]
     Active Substance: DUPILUMAB
     Indication: Nasal disorder
     Dosage: 300 MG, QOW
     Route: 058
     Dates: start: 20210426
  2. AMOXICILLIN [Concomitant]
     Active Substance: AMOXICILLIN
     Dosage: 500MG
  3. LEVOFLOXACIN [Concomitant]
     Active Substance: LEVOFLOXACIN
     Dosage: 5MG
  4. LISINOPRIL [Concomitant]
     Active Substance: LISINOPRIL
  5. NORCO [Concomitant]
     Active Substance: ACETAMINOPHEN\HYDROCODONE BITARTRATE
     Dosage: 10-325MG
  6. WELCHOL [Concomitant]
     Active Substance: COLESEVELAM HYDROCHLORIDE
     Dosage: 625MG

REACTIONS (3)
  - Pruritus [Unknown]
  - Lacrimation increased [Unknown]
  - Eye irritation [Unknown]
